FAERS Safety Report 9115650 (Version 1)
Quarter: 2013Q1

REPORT INFORMATION
  Report Type: Spontaneous
  Country: US (occurrence: US)
  Receive Date: 20130225
  Receipt Date: 20130225
  Transmission Date: 20140127
  Serious: No
  Sender: FDA-Public Use
  Company Number: US-BRISTOL-MYERS SQUIBB COMPANY-16916561

PATIENT
  Age: 28 Year
  Sex: Female
  Weight: 79.36 kg

DRUGS (1)
  1. KENALOG-10 INJ [Suspect]
     Indication: ALOPECIA AREATA
     Dosage: 2 INJ.DERMOJET NEEDLELESS INJ,RECEIVED LOCALLY TO SCALP,2MG/CC,1 TREATMENT
     Route: 026
     Dates: start: 20120829, end: 20120829

REACTIONS (2)
  - Exposure during breast feeding [Unknown]
  - Injection site pain [Recovered/Resolved]
